FAERS Safety Report 23960228 (Version 1)
Quarter: 2024Q2

REPORT INFORMATION
  Report Type: Spontaneous
  Country: US (occurrence: None)
  Receive Date: 20240608
  Receipt Date: 20240608
  Transmission Date: 20240716
  Serious: Yes (Other)
  Sender: FDA-Public Use
  Company Number: None

PATIENT
  Age: 29 Year
  Sex: Male
  Weight: 101.25 kg

DRUGS (1)
  1. HERBALS\MUSHROOMS UNSPECIFIED [Suspect]
     Active Substance: HERBALS\MUSHROOMS UNSPECIFIED
     Dates: start: 20231201, end: 20240406

REACTIONS (5)
  - Loss of consciousness [None]
  - Seizure [None]
  - Fall [None]
  - Skin laceration [None]
  - Essential tremor [None]

NARRATIVE: CASE EVENT DATE: 20240406
